FAERS Safety Report 6647863-7 (Version None)
Quarter: 2010Q1

REPORT INFORMATION
  Report Type: 
  Country: None (occurrence: None)
  Receive Date: 20100324
  Receipt Date: 20100316
  Transmission Date: 20100710
  Serious: Yes (Other)
  Sender: FDA-Public Use
  Company Number: ES-JNJFOC-20100104801

PATIENT
  Age: 93 Year
  Sex: Female

DRUGS (2)
  1. LEVOFLOXACIN [Suspect]
     Indication: DRUG USE FOR UNKNOWN INDICATION
     Route: 042
  2. ACTIRA [Suspect]
     Indication: PNEUMONIA
     Route: 048

REACTIONS (1)
  - HYPO HDL CHOLESTEROLAEMIA [None]
